FAERS Safety Report 18545873 (Version 1)
Quarter: 2020Q4

REPORT INFORMATION
  Report Type: Report from Study
  Country: TR (occurrence: TR)
  Receive Date: 20201125
  Receipt Date: 20201125
  Transmission Date: 20210114
  Serious: Yes (Hospitalization)
  Sender: FDA-Public Use
  Company Number: TR-REGENERON PHARMACEUTICALS, INC.-2020-89725

PATIENT

DRUGS (5)
  1. CONTRAMAL [Concomitant]
     Active Substance: TRAMADOL HYDROCHLORIDE
     Indication: ARTHRALGIA
     Dosage: 50 MG, QD
     Route: 048
     Dates: start: 20190910
  2. CEMIPLIMAB [Suspect]
     Active Substance: CEMIPLIMAB
     Indication: NON-SMALL CELL LUNG CANCER STAGE IV
     Dosage: 350 MG, Q3W
     Route: 042
     Dates: start: 20200214
  3. GEMCITABINE. [Suspect]
     Active Substance: GEMCITABINE
     Indication: NON-SMALL CELL LUNG CANCER STAGE IV
     Dosage: 1250 MG/M2, DAY 1 AND DAY 8 EVERY 21 DAYS FOR 4 TO 6 CYCLES
     Route: 042
     Dates: start: 20190801, end: 20191211
  4. CISPLATIN. [Suspect]
     Active Substance: CISPLATIN
     Indication: NON-SMALL CELL LUNG CANCER STAGE IV
     Dosage: 100 MG/M2,Q3W
     Route: 042
     Dates: start: 20190801, end: 20191204
  5. DUROGESIC [Concomitant]
     Active Substance: FENTANYL
     Indication: ARTHRALGIA
     Dosage: 50 MCG, QD
     Route: 062
     Dates: start: 20190910

REACTIONS (1)
  - Sepsis [Recovering/Resolving]

NARRATIVE: CASE EVENT DATE: 20201119
